FAERS Safety Report 5767099-1 (Version None)
Quarter: 2008Q2

REPORT INFORMATION
  Report Type: 
  Country: None (occurrence: None)
  Receive Date: 20080609
  Receipt Date: 20080311
  Transmission Date: 20081010
  Serious: No
  Sender: FDA-Public Use
  Company Number: 002#1#2008-00124

PATIENT
  Age: 68 Year
  Sex: Female
  Weight: 69.8539 kg

DRUGS (1)
  1. NEUPRO [Suspect]
     Indication: RESTLESS LEGS SYNDROME
     Dosage: 2MG/24H,1 IN 1 D,TRANSDERMAL
     Route: 062
     Dates: start: 20071101

REACTIONS (3)
  - APPLICATION SITE IRRITATION [None]
  - APPLICATION SITE REACTION [None]
  - OFF LABEL USE [None]
